FAERS Safety Report 6339406-2 (Version None)
Quarter: 2009Q3

REPORT INFORMATION
  Report Type: 
  Country: None (occurrence: None)
  Receive Date: 20090903
  Receipt Date: 20090828
  Transmission Date: 20100115
  Serious: Yes (Hospitalization)
  Sender: FDA-Public Use
  Company Number: ES-JNJFOC-20090808959

PATIENT
  Age: 79 Year
  Sex: Female

DRUGS (6)
  1. DURAGESIC-100 [Suspect]
     Route: 062
  2. DURAGESIC-100 [Suspect]
     Route: 062
  3. DURAGESIC-100 [Suspect]
     Route: 062
  4. DURAGESIC-100 [Suspect]
     Indication: NEURALGIA
     Route: 062
  5. AMITRIPTYLINE [Interacting]
     Indication: NEURALGIA
     Route: 048
  6. CARBIDOPA [Interacting]
     Indication: PARKINSON'S DISEASE
     Route: 048

REACTIONS (2)
  - DRUG INTERACTION [None]
  - RESPIRATORY DEPRESSION [None]
